FAERS Safety Report 7354469-3 (Version None)
Quarter: 2011Q1

REPORT INFORMATION
  Report Type: 
  Country: None (occurrence: None)
  Receive Date: 20110316
  Receipt Date: 20110216
  Transmission Date: 20110831
  Serious: Yes (Hospitalization)
  Sender: FDA-Public Use
  Company Number: US-BAYER-201036073NA

PATIENT
  Sex: Female
  Weight: 109 kg

DRUGS (4)
  1. AVONEX [Concomitant]
     Indication: MULTIPLE SCLEROSIS
     Dosage: UNK
     Dates: start: 20070101
  2. METFORMIN HCL [Concomitant]
     Indication: INSULIN RESISTANCE
     Dosage: UNK
     Dates: start: 20070101
  3. YAZ [Suspect]
     Indication: CONTRACEPTION
     Dosage: UNK UNK, UNK
     Route: 048
     Dates: start: 20070601, end: 20080901
  4. LAMICTAL [Concomitant]
     Indication: CYCLOTHYMIC DISORDER
     Dosage: UNK
     Dates: start: 20010101

REACTIONS (3)
  - PAIN [None]
  - OEDEMA PERIPHERAL [None]
  - DEEP VEIN THROMBOSIS [None]
